FAERS Safety Report 10671473 (Version 1)
Quarter: 2014Q4

REPORT INFORMATION
  Report Type: Spontaneous
  Country: IT (occurrence: IT)
  Receive Date: 20141223
  Receipt Date: 20141223
  Transmission Date: 20150529
  Serious: Yes (Hospitalization)
  Sender: FDA-Public Use
  Company Number: IT-NOVOPROD-432895

PATIENT
  Age: 84 Year
  Sex: Male

DRUGS (4)
  1. CARDIOASPIRIN [Concomitant]
     Active Substance: ASPIRIN
     Indication: MYOCARDIAL ISCHAEMIA
     Dosage: 1 U
     Route: 048
     Dates: start: 20141207
  2. NOVORAPID [Suspect]
     Active Substance: INSULIN ASPART
     Indication: DIABETES MELLITUS
     Dosage: 53 IU/DIE
     Route: 058
     Dates: start: 20111207
  3. PRETERAX                           /01421201/ [Concomitant]
     Indication: ESSENTIAL HYPERTENSION
     Dosage: 1 U
     Route: 048
     Dates: start: 20141207
  4. CONGESCOR [Concomitant]
     Active Substance: BISOPROLOL
     Dosage: 1 U
     Route: 048

REACTIONS (2)
  - Hypoglycaemia [Recovering/Resolving]
  - Presyncope [Recovering/Resolving]

NARRATIVE: CASE EVENT DATE: 20141207
